FAERS Safety Report 24004265 (Version 2)
Quarter: 2024Q3

REPORT INFORMATION
  Report Type: Spontaneous
  Country: FR (occurrence: FR)
  Receive Date: 20240624
  Receipt Date: 20240702
  Transmission Date: 20241017
  Serious: Yes (Other)
  Sender: SANOFI AVENTIS
  Company Number: FR-SA-SAC20240620001366

PATIENT
  Age: 3 Year
  Sex: Female

DRUGS (1)
  1. DUPILUMAB [Suspect]
     Active Substance: DUPILUMAB
     Indication: Eosinophilic oesophagitis
     Dosage: UNK
     Route: 065

REACTIONS (5)
  - Seizure [Unknown]
  - Blood test abnormal [Unknown]
  - Pyrexia [Unknown]
  - Headache [Unknown]
  - Ill-defined disorder [Unknown]
